FAERS Safety Report 7731311-X (Version None)
Quarter: 2011Q3

REPORT INFORMATION
  Report Type: 
  Country: None (occurrence: None)
  Receive Date: 20110906
  Receipt Date: 20110601
  Transmission Date: 20111222
  Serious: No
  Sender: FDA-Public Use
  Company Number: US-AMGEN-USASP2011024158

PATIENT
  Sex: Female

DRUGS (7)
  1. CALCIUM CARBONATE [Concomitant]
  2. VITAMIN D [Concomitant]
  3. MULTIVITAMIN                       /00097801/ [Concomitant]
  4. WELLBUTRIN [Concomitant]
  5. TYLENOL (CAPLET) [Concomitant]
  6. MEGACE [Concomitant]
  7. XGEVA [Suspect]
     Indication: METASTASES TO BONE

REACTIONS (2)
  - ALOPECIA [None]
  - TENDONITIS [None]
